FAERS Safety Report 20749667 (Version 2)
Quarter: 2022Q2

REPORT INFORMATION
  Report Type: Spontaneous
  Country: DE (occurrence: DE)
  Receive Date: 20220426
  Receipt Date: 20220506
  Transmission Date: 20220721
  Serious: Yes (Hospitalization, Disabling)
  Sender: FDA-Public Use
  Company Number: ALC2022DE001839

PATIENT

DRUGS (23)
  1. ATROPINE [Suspect]
     Active Substance: ATROPINE
     Indication: Retinal artery occlusion
     Dosage: UNK UNK, BID
     Route: 047
  2. ATROPINE [Suspect]
     Active Substance: ATROPINE
     Dosage: QD (DOSE REDUCED)
     Route: 047
  3. METHYLPREDNISOLONE [Suspect]
     Active Substance: METHYLPREDNISOLONE
     Indication: Retinal artery occlusion
     Dosage: 100 MG, QD
     Route: 042
  4. TINZAPARIN SODIUM [Suspect]
     Active Substance: TINZAPARIN SODIUM
     Indication: Retinal artery occlusion
     Dosage: 4.500IE
     Route: 058
  5. PREDNISONE [Suspect]
     Active Substance: PREDNISONE
     Indication: Retinal artery occlusion
     Dosage: 5 MG, QD, FOR TWO WEEKS
     Route: 048
  6. PREDNISONE [Suspect]
     Active Substance: PREDNISONE
     Dosage: 90 MG
     Route: 048
  7. PREDNISONE [Suspect]
     Active Substance: PREDNISONE
     Dosage: 60 MG
     Route: 048
  8. PREDNISONE [Suspect]
     Active Substance: PREDNISONE
     Dosage: 50 MG, QD (REDUCED)
     Route: 048
  9. PREDNISONE [Suspect]
     Active Substance: PREDNISONE
     Dosage: 10 MG (FURTHER REDUCTION OF 10 MG EVERY THREE DAYS
     Route: 048
  10. DEXPANTHENOL [Suspect]
     Active Substance: DEXPANTHENOL
     Indication: Retinal artery occlusion
     Dosage: 0.25 D
     Route: 047
  11. DEXPANTHENOL [Suspect]
     Active Substance: DEXPANTHENOL
     Dosage: 2 HOURS, DOSE INCREASED
     Route: 047
  12. DEXPANTHENOL [Suspect]
     Active Substance: DEXPANTHENOL
     Dosage: DOSE REDUCED (6 TIMES DAILY)
     Route: 047
  13. CLINDAMYCIN [Suspect]
     Active Substance: CLINDAMYCIN
     Indication: Retinal artery occlusion
     Dosage: 300 MG, 0.25 D
     Route: 048
  14. PREDNISOLONE [Suspect]
     Active Substance: PREDNISOLONE
     Indication: Retinal artery occlusion
     Dosage: 10 MG/ML, TID
     Route: 047
  15. PREDNISOLONE [Suspect]
     Active Substance: PREDNISOLONE
     Dosage: 10 MG/ML, QD
     Route: 047
  16. PREDNISOLONE [Suspect]
     Active Substance: PREDNISOLONE
     Dosage: 10 MG/ML, BID (DOSE REDUCED)
     Route: 047
  17. HYALURONIC ACID\LIDOCAINE [Suspect]
     Active Substance: HYALURONIC ACID\LIDOCAINE
     Indication: Dermal filler injection
     Dosage: 0.7 ML, GLABELLAR INJECTION
     Route: 065
  18. OFLOXACIN [Suspect]
     Active Substance: OFLOXACIN
     Indication: Retinal artery occlusion
     Dosage: 3 MILLIGRAM PER GRAM, 0.25 D
     Route: 047
  19. OFLOXACIN [Suspect]
     Active Substance: OFLOXACIN
     Dosage: 3 MILLIGRAM PER GRAM DOSE REDUCED, TID
     Route: 047
  20. ASPIRIN [Suspect]
     Active Substance: ASPIRIN
     Indication: Retinal artery occlusion
     Dosage: 100 MG, QD
     Route: 048
  21. PANTOPRAZOLE [Suspect]
     Active Substance: PANTOPRAZOLE
     Indication: Retinal artery occlusion
     Dosage: 40 MG, QD
     Route: 048
  22. SEA WATER [Concomitant]
     Active Substance: SEA WATER
     Indication: Product used for unknown indication
     Dosage: UNK
     Route: 065
  23. DEXAMETHASONE [Concomitant]
     Active Substance: DEXAMETHASONE
     Indication: Retinal artery occlusion
     Dosage: 1 MG/ML, QD
     Route: 047

REACTIONS (9)
  - Strabismus [Not Recovered/Not Resolved]
  - Skin lesion [Not Recovered/Not Resolved]
  - Drug ineffective [Unknown]
  - Anterior segment ischaemia [Not Recovered/Not Resolved]
  - Hypotonia [Not Recovered/Not Resolved]
  - Lagophthalmos [Not Recovered/Not Resolved]
  - Retinal degeneration [Not Recovered/Not Resolved]
  - Blindness [Not Recovered/Not Resolved]
  - Madarosis [Not Recovered/Not Resolved]
